FAERS Safety Report 8589034-3 (Version None)
Quarter: 2012Q3

REPORT INFORMATION
  Report Type: 
  Country: None (occurrence: None)
  Receive Date: 20120813
  Receipt Date: 20120804
  Transmission Date: 20120928
  Serious: Yes (Hospitalization)
  Sender: FDA-Public Use
  Company Number: IT-PFIZER INC-2012190749

PATIENT
  Age: 77 Year
  Sex: Female

DRUGS (3)
  1. AMOXICILLIN [Concomitant]
     Indication: ARTHRITIS BACTERIAL
  2. PHENYTOIN SODIUM [Suspect]
     Indication: EPILEPSY
     Dosage: 100 MG PER DAY
  3. LEVOFLOXACIN [Concomitant]
     Indication: ARTHRITIS BACTERIAL

REACTIONS (3)
  - CHOLESTASIS [None]
  - MONARTHRITIS [None]
  - PYREXIA [None]
